FAERS Safety Report 4388007-4 (Version None)
Quarter: 2004Q2

REPORT INFORMATION
  Report Type: 
  Country: None (occurrence: None)
  Receive Date: 20040607
  Receipt Date: 20031112
  Transmission Date: 20050107
  Serious: Yes (Other)
  Sender: FDA-Public Use
  Company Number: 351762

PATIENT
  Sex: Male

DRUGS (1)
  1. ACCUTANE [Suspect]
     Dosage: ORAL
     Route: 048
     Dates: start: 20030715

REACTIONS (3)
  - DEPRESSION [None]
  - ILL-DEFINED DISORDER [None]
  - MOOD SWINGS [None]
